FAERS Safety Report 16479640 (Version 1)
Quarter: 2019Q2

REPORT INFORMATION
  Report Type: Report from Study
  Country: US (occurrence: US)
  Receive Date: 20190626
  Receipt Date: 20190626
  Transmission Date: 20190711
  Serious: Yes (Other)
  Sender: FDA-Public Use
  Company Number: US-JNJFOC-20190515196

PATIENT
  Age: 82 Year
  Sex: Female

DRUGS (10)
  1. IMBRUVICA [Suspect]
     Active Substance: IBRUTINIB
     Indication: CHRONIC LYMPHOCYTIC LEUKAEMIA
     Route: 048
     Dates: start: 20190306
  2. VITAMIN D3 [Concomitant]
     Active Substance: CHOLECALCIFEROL
  3. CYANOCOBALAMIN. [Concomitant]
     Active Substance: CYANOCOBALAMIN
  4. ARMOUR THYROID [Concomitant]
     Active Substance: THYROID, PORCINE
  5. COQ10 [Concomitant]
     Active Substance: UBIDECARENONE
  6. ACETYLSALICYLIC ACID [Concomitant]
     Active Substance: ASPIRIN
  7. ALLOPURINOL. [Concomitant]
     Active Substance: ALLOPURINOL
  8. IBUPROFEN UNSPECIFIED [Concomitant]
     Active Substance: IBUPROFEN
  9. VITAMIN C [Concomitant]
     Active Substance: ASCORBIC ACID
  10. LYSINE W/ZINC OXIDE [Concomitant]

REACTIONS (9)
  - Incorrect dose administered [Unknown]
  - Off label use [Unknown]
  - Deafness [Unknown]
  - Arthralgia [Recovering/Resolving]
  - Haematotympanum [Unknown]
  - Back pain [Unknown]
  - Contusion [Unknown]
  - Joint swelling [Recovering/Resolving]
  - Musculoskeletal pain [Unknown]

NARRATIVE: CASE EVENT DATE: 20190306
